FAERS Safety Report 9213762 (Version 1)
Quarter: 2013Q2

REPORT INFORMATION
  Report Type: Spontaneous
  Country: GB (occurrence: GB)
  Receive Date: 20130405
  Receipt Date: 20130405
  Transmission Date: 20140414
  Serious: Yes (Other)
  Sender: FDA-Public Use
  Company Number: GB-PFIZER INC-2013103931

PATIENT
  Sex: Female

DRUGS (2)
  1. EXEMESTANE [Suspect]
     Indication: BREAST CANCER
  2. AFINITOR [Suspect]
     Indication: BREAST CANCER

REACTIONS (2)
  - Monoparesis [Unknown]
  - Myelitis transverse [Unknown]
